FAERS Safety Report 22756765 (Version 4)
Quarter: 2023Q4

REPORT INFORMATION
  Report Type: Spontaneous
  Country: US (occurrence: US)
  Receive Date: 20230727
  Receipt Date: 20231218
  Transmission Date: 20240110
  Serious: Yes (Hospitalization, Other)
  Sender: FDA-Public Use
  Company Number: US-BRISTOL-MYERS SQUIBB COMPANY-2023-104395

PATIENT
  Age: 73 Year
  Sex: Female

DRUGS (2)
  1. LENALIDOMIDE [Interacting]
     Active Substance: LENALIDOMIDE
     Indication: Bone marrow transplant
     Dosage: TAKE 1 CAPSULE BY MOUTH EVERY DAY FOR 21 DAYS ON THEN 7 DAYS OFF
     Route: 048
     Dates: start: 20230313
  2. BACTRIM [Interacting]
     Active Substance: SULFAMETHOXAZOLE\TRIMETHOPRIM
     Indication: Product used for unknown indication

REACTIONS (10)
  - Cough [Recovering/Resolving]
  - Vertigo [Recovering/Resolving]
  - Fall [Recovered/Resolved]
  - Memory impairment [Unknown]
  - Off label use [Unknown]
  - Somnolence [Recovered/Resolved]
  - Urinary tract infection [Recovered/Resolved]
  - Bronchitis [Recovered/Resolved]
  - Head injury [Unknown]
  - Drug interaction [Unknown]
